FAERS Safety Report 25218210 (Version 2)
Quarter: 2025Q2

REPORT INFORMATION
  Report Type: Spontaneous
  Country: US (occurrence: US)
  Receive Date: 20250421
  Receipt Date: 20250515
  Transmission Date: 20250717
  Serious: No
  Sender: ROCHE
  Company Number: US-ROCHE-10000261277

PATIENT
  Age: 13 Year
  Sex: Male
  Weight: 68.04 kg

DRUGS (1)
  1. HEMLIBRA [Suspect]
     Active Substance: EMICIZUMAB-KXWH
     Indication: Factor VIII deficiency
     Dosage: 300 MG/2ML
     Route: 058
     Dates: start: 202311

REACTIONS (5)
  - Contusion [Unknown]
  - Road traffic accident [Unknown]
  - Fall [Unknown]
  - Injury [Unknown]
  - Off label use [Unknown]

NARRATIVE: CASE EVENT DATE: 20250314
